FAERS Safety Report 6527904-8 (Version None)
Quarter: 2010Q1

REPORT INFORMATION
  Report Type: 
  Country: None (occurrence: None)
  Receive Date: 20100105
  Receipt Date: 20100105
  Transmission Date: 20100710
  Serious: Yes (Hospitalization)
  Sender: FDA-Public Use
  Company Number: None

PATIENT
  Age: 75 Year
  Sex: Male
  Weight: 91.7 kg

DRUGS (1)
  1. WARFARIN [Suspect]
     Indication: HEART VALVE REPLACEMENT
     Dates: start: 19980420, end: 20091227

REACTIONS (1)
  - HAEMATURIA [None]
